FAERS Safety Report 10735723 (Version 3)
Quarter: 2015Q1

REPORT INFORMATION
  Report Type: Report from Study
  Country: US (occurrence: US)
  Receive Date: 20150126
  Receipt Date: 20150310
  Transmission Date: 20150721
  Serious: Yes (Death)
  Sender: FDA-Public Use
  Company Number: US-BIOGENIDEC-2015BI004896

PATIENT
  Sex: Female

DRUGS (2)
  1. TYSABRI [Suspect]
     Active Substance: NATALIZUMAB
     Indication: OFF LABEL USE
     Route: 042
     Dates: start: 20141114
  2. TYSABRI [Suspect]
     Active Substance: NATALIZUMAB
     Indication: NEUROMYELITIS OPTICA
     Route: 042
     Dates: start: 20141114

REACTIONS (2)
  - Product use issue [Unknown]
  - Neuromyelitis optica [Fatal]
